FAERS Safety Report 18567939 (Version 1)
Quarter: 2020Q4

REPORT INFORMATION
  Report Type: Other
  Country: GB (occurrence: GB)
  Receive Date: 20201202
  Receipt Date: 20201202
  Transmission Date: 20210114
  Serious: Yes (Other)
  Sender: FDA-Public Use
  Company Number: GB-HEALTHCARE PHARMACEUTICALS LTD.-2096537

PATIENT
  Age: 7 Year
  Sex: Female

DRUGS (2)
  1. CISPLATIN. [Suspect]
     Active Substance: CISPLATIN
     Route: 065
  2. DOXORUBICIN HYDROCHLORIDE. [Suspect]
     Active Substance: DOXORUBICIN HYDROCHLORIDE
     Indication: PANCREATOBLASTOMA
     Route: 065

REACTIONS (2)
  - Myelosuppression [Unknown]
  - Renal tubular disorder [Unknown]
